FAERS Safety Report 12238880 (Version 1)
Quarter: 2016Q2

REPORT INFORMATION
  Report Type: Spontaneous
  Country: US (occurrence: US)
  Receive Date: 20160405
  Receipt Date: 20160405
  Transmission Date: 20160815
  Serious: No
  Sender: FDA-Public Use
  Company Number: US-PFIZER INC-2016151073

PATIENT
  Age: 60 Year
  Sex: Female
  Weight: 52 kg

DRUGS (2)
  1. ADVIL [Suspect]
     Active Substance: IBUPROFEN
     Indication: ARTHRITIS
     Dosage: 400 MG, 4X/DAY(200MG TWO LIQUIGELS BY MOUTH 4 TIMES A DAY)
     Dates: start: 2014
  2. GLUTEN [Suspect]
     Active Substance: WHEAT GLUTEN
     Dosage: UNK
     Dates: start: 2014

REACTIONS (4)
  - Weight decreased [Unknown]
  - Diarrhoea [Unknown]
  - Intentional product use issue [Unknown]
  - Reaction to drug excipients [Unknown]
